FAERS Safety Report 8513227-4 (Version None)
Quarter: 2012Q3

REPORT INFORMATION
  Report Type: 
  Country: None (occurrence: None)
  Receive Date: 20120716
  Receipt Date: 20120706
  Transmission Date: 20120928
  Serious: Yes (Other)
  Sender: FDA-Public Use
  Company Number: CN-ABBOTT-12P-035-0954490-00

PATIENT
  Age: 11 Month
  Sex: Male

DRUGS (1)
  1. DEPAKENE [Suspect]
     Indication: EPILEPSY
     Route: 048
     Dates: start: 20120401

REACTIONS (4)
  - TRISMUS [None]
  - CONVULSION [None]
  - CRYING [None]
  - EPILEPSY [None]
